FAERS Safety Report 10222779 (Version 3)
Quarter: 2015Q1

REPORT INFORMATION
  Report Type: Report from Study
  Country: DE (occurrence: DE)
  Receive Date: 20140606
  Receipt Date: 20150126
  Transmission Date: 20150720
  Serious: Yes (Hospitalization)
  Sender: FDA-Public Use
  Company Number: DE-BRISTOL-MYERS SQUIBB COMPANY-20797825

PATIENT
  Age: 73 Year
  Sex: Male
  Weight: 78.9 kg

DRUGS (25)
  1. NIVOLUMAB [Suspect]
     Active Substance: NIVOLUMAB
     Indication: METASTATIC MALIGNANT MELANOMA
     Dosage: 90 ML, UNK
     Route: 042
     Dates: start: 20131022, end: 20140326
  2. IPILIMUMAB [Suspect]
     Active Substance: IPILIMUMAB
     Indication: METASTATIC MALIGNANT MELANOMA
     Dosage: 3 MG/KG, UNK
     Route: 042
     Dates: start: 20131022, end: 20140326
  3. MILRINONE [Concomitant]
     Active Substance: MILRINONE
     Dosage: 10 MG, UNK
  4. HEPARIN [Concomitant]
     Active Substance: HEPARIN SODIUM
     Dosage: 800 IU, QH
  5. PIRINITRAMIDE [Concomitant]
     Dosage: 3 MG, UNK
     Route: 042
  6. ALLOPURINOL. [Concomitant]
     Active Substance: ALLOPURINOL
     Dosage: 300 MG, UNK
     Dates: start: 19601101
  7. CALCIUM [Concomitant]
     Active Substance: CALCIUM
     Dosage: UNK
     Dates: start: 20101101
  8. CARBIMAZOLE [Concomitant]
     Active Substance: CARBIMAZOLE
     Dosage: UNK
     Dates: start: 20131205
  9. LOPERAMIDE [Concomitant]
     Active Substance: LOPERAMIDE
     Dosage: 2 MG, UNK
     Dates: start: 20140225
  10. GLYCEROL [Concomitant]
     Active Substance: GLYCERIN
     Dosage: 50 MG, UNK
  11. SIMVASTATIN. [Concomitant]
     Active Substance: SIMVASTATIN
     Dosage: 20 MG, QD
     Route: 048
  12. PREDNISOLONE. [Concomitant]
     Active Substance: PREDNISOLONE
     Dosage: INFLANEFRAN FORTE EYE DROPS  1DF:5UNIT NOS  10MG/ML
     Route: 061
     Dates: start: 20131126
  13. TORASEMIDE [Concomitant]
     Active Substance: TORSEMIDE
     Dosage: 2-2-0
     Route: 048
  14. SPIRONOLACTONE. [Concomitant]
     Active Substance: SPIRONOLACTONE
     Dosage: 1-0-0
  15. PANTOZOL [Concomitant]
     Active Substance: PANTOPRAZOLE SODIUM
     Dosage: 1-0-0
     Dates: start: 20101101
  16. FUROSEMIDE. [Concomitant]
     Active Substance: FUROSEMIDE
     Dosage: 25MAR14-20MG
     Dates: start: 20101101
  17. ASPIRIN. [Concomitant]
     Active Substance: ASPIRIN
     Dosage: 0-1-0
     Route: 048
     Dates: start: 20071101
  18. METAMIZOLE [Concomitant]
     Active Substance: METAMIZOLE
     Dosage: 5 G, UNK
  19. BISOPROLOL [Concomitant]
     Active Substance: BISOPROLOL
     Dosage: UNK
     Dates: start: 20071101
  20. RAMIPRIL. [Concomitant]
     Active Substance: RAMIPRIL
     Dosage: 1-0-1
     Route: 048
     Dates: start: 20071101
  21. GLIBENCLAMIDE [Concomitant]
     Active Substance: GLYBURIDE
     Dosage: 1/2 1F REQUIRED
     Dates: start: 20031101
  22. METFORMIN [Concomitant]
     Active Substance: METFORMIN HYDROCHLORIDE
     Dosage: 1000MG
     Dates: start: 20031101
  23. HYDROCORTISONE. [Concomitant]
     Active Substance: HYDROCORTISONE
     Dosage: 1DF: 5UNIT NOS-3.75MG  10MG  3-0-0
     Dates: start: 20140217
  24. L-THYROXINE [Concomitant]
     Active Substance: LEVOTHYROXINE
     Dosage: 26MAR14-ONGOING:50UNIT NOS.
     Dates: start: 20140220
  25. METOPROLOL [Concomitant]
     Active Substance: METOPROLOL
     Dosage: 47,5 MG 1-0-1
     Route: 048

REACTIONS (1)
  - Cardiomyopathy [Recovering/Resolving]

NARRATIVE: CASE EVENT DATE: 20140519
